FAERS Safety Report 22643857 (Version 1)
Quarter: 2023Q2

REPORT INFORMATION
  Report Type: Report from Study
  Country: US (occurrence: US)
  Receive Date: 20230627
  Receipt Date: 20230627
  Transmission Date: 20230722
  Serious: Yes (Other)
  Sender: FDA-Public Use
  Company Number: US-TAKEDA-2017BLT002598

PATIENT
  Sex: Female

DRUGS (2)
  1. HUMAN IMMUNOGLOBULIN G [Suspect]
     Active Substance: HUMAN IMMUNOGLOBULIN G
     Indication: Immunodeficiency common variable
     Dosage: 8 GRAM
     Route: 042
  2. HUMAN IMMUNOGLOBULIN G [Suspect]
     Active Substance: HUMAN IMMUNOGLOBULIN G
     Indication: Primary immunodeficiency syndrome

REACTIONS (9)
  - Seizure [Recovered/Resolved]
  - Renal disorder [Recovered/Resolved]
  - Cardiac disorder [Recovered/Resolved]
  - Arthritis [Unknown]
  - Fall [Unknown]
  - Focal segmental glomerulosclerosis [Unknown]
  - Henoch-Schonlein purpura [Recovered/Resolved]
  - Infusion site pain [Unknown]
  - Tachycardia [Unknown]
